FAERS Safety Report 7569855-6 (Version None)
Quarter: 2011Q2

REPORT INFORMATION
  Report Type: 
  Country: None (occurrence: None)
  Receive Date: 20110622
  Receipt Date: 20110622
  Transmission Date: 20111010
  Serious: Yes (Death)
  Sender: FDA-Public Use
  Company Number: None

PATIENT
  Age: 80 Year
  Sex: Female

DRUGS (10)
  1. ZOMETA [Concomitant]
  2. NEURONTIN [Concomitant]
  3. ASCORBIC ACID [Concomitant]
  4. REVLIMID [Suspect]
     Indication: MULTIPLE MYELOMA
     Dosage: 15MG QD 21D/28D ORALLY
     Route: 048
     Dates: start: 20090601, end: 20090801
  5. K-TAB [Concomitant]
  6. OXYCODONE HCL [Concomitant]
  7. DECADRON [Concomitant]
  8. ACYCLOVIR [Concomitant]
  9. OSYCONTIN [Concomitant]
  10. VITAMIN B6 [Concomitant]

REACTIONS (2)
  - ASTHENIA [None]
  - INFECTION [None]
